FAERS Safety Report 21746087 (Version 1)
Quarter: 2022Q4

REPORT INFORMATION
  Report Type: Spontaneous
  Country: JP (occurrence: JP)
  Receive Date: 20221219
  Receipt Date: 20221219
  Transmission Date: 20230113
  Serious: Yes (Life-Threatening, Hospitalization, Other)
  Sender: FDA-Public Use
  Company Number: JP-TAKEDA-2022TJP077768AA

PATIENT
  Age: 81 Year
  Sex: Male
  Weight: 58.7 kg

DRUGS (6)
  1. VONOPRAZAN FUMARATE [Suspect]
     Active Substance: VONOPRAZAN FUMARATE
     Indication: Product used for unknown indication
     Dosage: 20 MILLIGRAM, QD
     Route: 048
     Dates: start: 20221117, end: 20221122
  2. LANSOPRAZOLE [Suspect]
     Active Substance: LANSOPRAZOLE
     Indication: Product used for unknown indication
     Dosage: 30 MILLIGRAM, BID
     Route: 042
     Dates: start: 20221111, end: 20221116
  3. ISOSORBIDE DINITRATE [Concomitant]
     Active Substance: ISOSORBIDE DINITRATE
     Dosage: 40 MILLIGRAM, QD
     Route: 062
     Dates: start: 20221111
  4. LINAGLIPTIN [Concomitant]
     Active Substance: LINAGLIPTIN
     Dosage: 5 MILLIGRAM, QD
     Route: 048
     Dates: start: 20221108
  5. PITRESSIN [Concomitant]
     Active Substance: VASOPRESSIN
     Dosage: 100 INTERNATIONAL UNIT, TID
     Route: 042
     Dates: start: 20221111, end: 20221117
  6. CEFAZOLIN SODIUM [Concomitant]
     Active Substance: CEFAZOLIN SODIUM
     Dosage: 2 GRAM, BID
     Route: 042
     Dates: start: 20221114, end: 20221201

REACTIONS (5)
  - Long QT syndrome [Recovered/Resolved]
  - Torsade de pointes [Recovered/Resolved]
  - Ventricular tachycardia [Recovering/Resolving]
  - Hypokalaemia [Recovered/Resolved]
  - Loss of consciousness [Recovering/Resolving]

NARRATIVE: CASE EVENT DATE: 20221117
